FAERS Safety Report 7713613-6 (Version None)
Quarter: 2011Q3

REPORT INFORMATION
  Report Type: 
  Country: None (occurrence: None)
  Receive Date: 20110826
  Receipt Date: 20110818
  Transmission Date: 20111222
  Serious: Yes (Other)
  Sender: FDA-Public Use
  Company Number: US-ROCHE-742519

PATIENT
  Sex: Male

DRUGS (11)
  1. PEGINTERFERON ALFA-2A [Suspect]
     Dosage: COMPLETED 38 WEEKS OF THERAPY.
     Route: 065
     Dates: end: 20110629
  2. PEGINTERFERON ALFA-2A [Suspect]
     Dosage: DOSE REDUCED; WEEK 19
     Route: 065
  3. PROCRIT [Suspect]
     Dosage: 40000
     Route: 065
     Dates: start: 20110314, end: 20110614
  4. LISINOPRIL [Concomitant]
  5. PEGINTERFERON ALFA-2A [Suspect]
     Indication: HEPATITIS C
     Dosage: FORM: PFS
     Route: 065
     Dates: start: 20101018
  6. RIBAVARIN [Suspect]
     Indication: HEPATITIS C
     Route: 065
     Dates: start: 20101018, end: 20110629
  7. XANAX [Concomitant]
     Indication: ANXIETY
     Route: 048
  8. PROMETAZINUM [Concomitant]
     Dosage: PRN
     Route: 048
  9. PEGINTERFERON ALFA-2A [Suspect]
     Dosage: REDUCED TO 1/2 OF PEGASYS. IN WEEK 31
     Route: 065
     Dates: start: 20110401, end: 20110614
  10. NEUPOGEN [Suspect]
     Indication: LEUKOPENIA
     Dosage: DOSE:300 MCG
     Route: 058
     Dates: start: 20110306, end: 20110614
  11. LEXAPRO [Concomitant]

REACTIONS (25)
  - WHITE BLOOD CELL COUNT ABNORMAL [None]
  - WEIGHT INCREASED [None]
  - FATIGUE [None]
  - ORAL DISORDER [None]
  - INFLUENZA LIKE ILLNESS [None]
  - WEIGHT DECREASED [None]
  - IRRITABILITY [None]
  - DEPRESSION [None]
  - SKIN ULCER [None]
  - THROMBOCYTOPENIA [None]
  - ANAEMIA [None]
  - NIGHT SWEATS [None]
  - NAUSEA [None]
  - HEADACHE [None]
  - HAEMOGLOBIN DECREASED [None]
  - PERICARDITIS [None]
  - OEDEMA PERIPHERAL [None]
  - HYPERHIDROSIS [None]
  - ALANINE AMINOTRANSFERASE INCREASED [None]
  - ASPARTATE AMINOTRANSFERASE INCREASED [None]
  - RESPIRATORY DISORDER [None]
  - CELLULITIS [None]
  - PRURITUS [None]
  - HYPERSENSITIVITY [None]
  - RASH MACULAR [None]
